FAERS Safety Report 7201787-5 (Version None)
Quarter: 2010Q4

REPORT INFORMATION
  Report Type: 
  Country: None (occurrence: None)
  Receive Date: 20101215
  Receipt Date: 20101202
  Transmission Date: 20110411
  Serious: Yes (Other)
  Sender: FDA-Public Use
  Company Number: US-2010-2814

PATIENT
  Sex: Male

DRUGS (4)
  1. NAVELBINE [Suspect]
     Indication: HODGKIN'S DISEASE
  2. GEMCITABINE [Concomitant]
  3. DOXORUBICIN [Concomitant]
  4. MONOCLONAL ANTIBODY SGN-30 [Concomitant]

REACTIONS (1)
  - PNEUMONITIS [None]
